FAERS Safety Report 5406722-8 (Version None)
Quarter: 2007Q3

REPORT INFORMATION
  Report Type: 
  Country: None (occurrence: None)
  Receive Date: 20070806
  Receipt Date: 20070806
  Transmission Date: 20080115
  Serious: Yes (Other)
  Sender: FDA-Public Use
  Company Number: None

PATIENT
  Age: 70 Year
  Sex: Female
  Weight: 56.6996 kg

DRUGS (1)
  1. PROPOXYPHENE NAPSYLATE W/ ACETAMINOPHEN [Suspect]
     Indication: BACK PAIN
     Dosage: ONE TABLET EVERY SIX HOURS PO
     Route: 048
     Dates: start: 20070802, end: 20070802

REACTIONS (5)
  - DIZZINESS [None]
  - DRY MOUTH [None]
  - GLOSSODYNIA [None]
  - NAUSEA [None]
  - PHARMACEUTICAL PRODUCT COMPLAINT [None]
